FAERS Safety Report 8126780 (Version 3)
Quarter: 2013Q2

REPORT INFORMATION
  Report Type: Spontaneous
  Country: US (occurrence: US)
  Receive Date: 20110908
  Receipt Date: 20130607
  Transmission Date: 20140414
  Serious: Yes (Hospitalization, Other)
  Sender: FDA-Public Use
  Company Number: US-ELI_LILLY_AND_COMPANY-US201109000124

PATIENT
  Age: 54 Year
  Sex: Male
  Weight: 85 kg

DRUGS (13)
  1. ADCIRCA [Suspect]
     Indication: PULMONARY ARTERIAL HYPERTENSION
     Dosage: 40 MG, QD
     Route: 048
     Dates: start: 20110810
  2. LETAIRIS [Concomitant]
     Dosage: 5 MG, QD
  3. POTASSIUM CHLORIDE [Concomitant]
     Dosage: 40 MEQ, BID
  4. TRAMADOL [Concomitant]
     Dosage: 100 MG, QD
  5. WARFARIN [Concomitant]
     Dosage: 7.5 MG, QD
     Route: 048
  6. WARFARIN [Concomitant]
     Dosage: 7.5 MG, QOD
  7. ZOLPIDEM [Concomitant]
     Dosage: 5 MG, EACH EVENING
     Route: 048
  8. COLCHICINE [Concomitant]
     Dosage: 0.6 MG, BID
     Route: 048
  9. DIGOXIN [Concomitant]
     Dosage: 0.125 MG, QD
     Route: 048
  10. HYDROCODONE BITARTRATE AND ACETAMINOPHEN [Concomitant]
     Dosage: 5 MG, PRN
  11. METOLAZONE [Concomitant]
     Dosage: 5 MG, 3/W
  12. SPIRONOLACTONE [Concomitant]
     Dosage: 25 MG, QD
     Route: 048
  13. TORSEMIDE [Concomitant]
     Dosage: 40 MG, EACH MORNING
     Route: 048

REACTIONS (5)
  - Cardiac failure congestive [Recovered/Resolved]
  - Renal failure acute [Recovered/Resolved]
  - Pulmonary hypertension [Recovered/Resolved]
  - Neuropathy peripheral [Unknown]
  - Oedema [Unknown]
